FAERS Safety Report 14929607 (Version 3)
Quarter: 2018Q4

REPORT INFORMATION
  Report Type: Spontaneous
  Country: NL (occurrence: NL)
  Receive Date: 20180523
  Receipt Date: 20181217
  Transmission Date: 20190204
  Serious: Yes (Death, Hospitalization, Other)
  Sender: FDA-Public Use
  Company Number: NL-MYLANLABS-2018M1033298

PATIENT
  Age: 73 Year
  Sex: Female

DRUGS (4)
  1. MYCOPHENOLATE MOFETIL. [Suspect]
     Active Substance: MYCOPHENOLATE MOFETIL
     Indication: PEMPHIGOID
     Dosage: UNK
     Route: 065
  2. PREDNISOLONE. [Concomitant]
     Active Substance: PREDNISOLONE
     Indication: PEMPHIGOID
     Dosage: 7.5 MILLIGRAM/KILOGRAM
     Route: 065
  3. RITUXIMAB. [Suspect]
     Active Substance: RITUXIMAB
     Dosage: 500 UNK(500 MG, UNK (ON DAYS 1 AND 15))
     Route: 065
  4. RITUXIMAB. [Suspect]
     Active Substance: RITUXIMAB
     Indication: PEMPHIGOID
     Dosage: 500 MG, UNK,FIRST CYCLE: 2 X 500 MG
     Route: 042

REACTIONS (12)
  - Death [Fatal]
  - Neutropenia [Fatal]
  - Sepsis [Fatal]
  - Multiple organ dysfunction syndrome [Fatal]
  - Intentional product use issue [Fatal]
  - Off label use [Fatal]
  - Loss of consciousness [Unknown]
  - Diarrhoea [Unknown]
  - Drug ineffective [Unknown]
  - Product use in unapproved indication [Fatal]
  - Leukopenia [Unknown]
  - Urinary tract infection [Unknown]
